FAERS Safety Report 9894201 (Version 2)
Quarter: 2014Q1

REPORT INFORMATION
  Report Type: Report from Study
  Country: FR (occurrence: FR)
  Receive Date: 20140213
  Receipt Date: 20140328
  Transmission Date: 20141002
  Serious: Yes (Hospitalization, Disabling, Other)
  Sender: FDA-Public Use
  Company Number: FR-BRISTOL-MYERS SQUIBB COMPANY-20187399

PATIENT
  Age: 79 Year
  Sex: 0

DRUGS (12)
  1. BLINDED: DAPAGLIFLOZIN [Suspect]
     Indication: TYPE 2 DIABETES MELLITUS
     Dates: start: 20131112
  2. METFORMIN HCL [Suspect]
     Indication: TYPE 2 DIABETES MELLITUS
     Route: 048
  3. SAXAGLIPTIN [Suspect]
     Indication: TYPE 2 DIABETES MELLITUS
     Route: 048
  4. INSULIN LISPRO [Suspect]
     Indication: TYPE 2 DIABETES MELLITUS
     Route: 058
  5. INSULIN GLARGINE [Suspect]
     Indication: TYPE 2 DIABETES MELLITUS
     Dosage: 60IU-20JAN14?ALSO 62 IU RESTARTED ON 21 JAN 14.
     Route: 058
  6. BLINDED: PLACEBO [Suspect]
     Indication: TYPE 2 DIABETES MELLITUS
     Dosage: THERAPY ON 12NOV13
     Dates: start: 20131011, end: 20131111
  7. HYDROCHLOROTHIAZIDE [Concomitant]
     Indication: HYPERTENSION
     Route: 048
  8. IRBESARTAN [Concomitant]
     Indication: HYPERTENSION
     Route: 048
  9. OMEPRAZOLE [Concomitant]
     Indication: PROPHYLAXIS
     Route: 048
  10. ASPIRIN [Concomitant]
     Indication: PROPHYLAXIS
     Route: 048
  11. CLOPIDOGREL BISULFATE [Concomitant]
     Indication: CARDIAC DISORDER
     Route: 048
  12. RILMENIDINE [Concomitant]
     Indication: HYPERTENSION
     Route: 048

REACTIONS (1)
  - Angina unstable [Recovered/Resolved]
